FAERS Safety Report 12704691 (Version 2)
Quarter: 2016Q3

REPORT INFORMATION
  Report Type: Spontaneous
  Country: US (occurrence: US)
  Receive Date: 20160831
  Receipt Date: 20160928
  Transmission Date: 20161109
  Serious: No
  Sender: FDA-Public Use
  Company Number: US-BAYER-2016-168813

PATIENT
  Age: 18 Year
  Sex: Female

DRUGS (2)
  1. MIRENA [Suspect]
     Active Substance: LEVONORGESTREL
     Indication: CONTRACEPTION
     Dosage: 20 MCG/24HR, CONT
     Route: 015
     Dates: start: 20130621, end: 20130624
  2. MIRENA [Suspect]
     Active Substance: LEVONORGESTREL
     Indication: CONTRACEPTION
     Dosage: 20 MCG/24HR, CONT
     Route: 015
     Dates: start: 20160205

REACTIONS (6)
  - Post procedural discomfort [None]
  - Device difficult to use [None]
  - Procedural pain [None]
  - Device expulsion [None]
  - Abdominal pain lower [None]
  - Device expulsion [None]

NARRATIVE: CASE EVENT DATE: 20130624
